FAERS Safety Report 16822394 (Version 1)
Quarter: 2019Q3

REPORT INFORMATION
  Report Type: Spontaneous
  Country: US (occurrence: US)
  Receive Date: 20190726
  Receipt Date: 20190726
  Transmission Date: 20191005
  Serious: Yes (Disabling)
  Sender: FDA-Public Use
  Company Number: None

PATIENT
  Age: 57 Year
  Sex: Male
  Weight: 81.65 kg

DRUGS (14)
  1. SIROLIMUS. [Concomitant]
     Active Substance: SIROLIMUS
  2. ASPIRIN. [Concomitant]
     Active Substance: ASPIRIN
  3. VITAMIN D3 [Concomitant]
     Active Substance: CHOLECALCIFEROL
  4. MYCOPHENOLATE [Suspect]
     Active Substance: MYCOPHENOLIC ACID
     Indication: HEART TRANSPLANT
     Dates: start: 20171006, end: 20190323
  5. CELLCEPT [Suspect]
     Active Substance: MYCOPHENOLATE MOFETIL\MYCOPHENOLATE MOFETIL HYDROCHLORIDE
  6. LOSARTAN. [Concomitant]
     Active Substance: LOSARTAN
  7. TACROLIMUS. [Concomitant]
     Active Substance: TACROLIMUS
  8. PHOSPHORUS [Concomitant]
     Active Substance: PHOSPHORUS
  9. CARVEDILOL. [Concomitant]
     Active Substance: CARVEDILOL
  10. MAGNESIUM [Concomitant]
     Active Substance: MAGNESIUM
  11. VITAMIN B12 [Concomitant]
     Active Substance: CYANOCOBALAMIN
  12. CBD [Concomitant]
     Active Substance: CANNABIDIOL
  13. MYFORTIC [Suspect]
     Active Substance: MYCOPHENOLATE SODIUM
  14. SPIRONOLACTONE. [Concomitant]
     Active Substance: SPIRONOLACTONE

REACTIONS (4)
  - Lethargy [None]
  - Fatigue [None]
  - Abdominal discomfort [None]
  - Taste disorder [None]
